FAERS Safety Report 7971031-X (Version None)
Quarter: 2011Q4

REPORT INFORMATION
  Report Type: 
  Country: None (occurrence: None)
  Receive Date: 20111212
  Receipt Date: 20111212
  Transmission Date: 20120403
  Serious: Yes (Other)
  Sender: FDA-Public Use
  Company Number: None

PATIENT
  Age: 78 Year
  Sex: Male
  Weight: 54.4 kg

DRUGS (1)
  1. ZITHROMAX [Suspect]
     Route: 042
     Dates: start: 20111207, end: 20111208

REACTIONS (1)
  - INFUSION SITE EXTRAVASATION [None]
